FAERS Safety Report 8159427-7 (Version None)
Quarter: 2012Q1

REPORT INFORMATION
  Report Type: 
  Country: None (occurrence: None)
  Receive Date: 20120223
  Receipt Date: 20120213
  Transmission Date: 20120608
  Serious: Yes (Hospitalization)
  Sender: FDA-Public Use
  Company Number: JP-TEVA-322572ISR

PATIENT
  Age: 19 Year
  Sex: Male

DRUGS (4)
  1. CARBOPLATIN [Suspect]
     Indication: GERM CELL CANCER
     Dosage: ONE COURSE OF CARBOPLATIN 400 MG/M2 AND ETOPOSIDE FOR 3 CONSECUTIVE DAYS
     Route: 065
  2. CISPLATIN [Suspect]
     Indication: GERM CELL CANCER
     Dosage: CISPLATIN 20 MG/M2 AND ETOPOSIDE FOR 5 CONSECUTIVE DAYS
     Route: 065
  3. ETOPOSIDE [Suspect]
     Indication: GERM CELL CANCER
     Dosage: ONE COURSE OF 100 MG/M2 FOR 3 CONSECUTIVE DAYS, IN COMBINATION WITH CARBOPLATIN
     Route: 065
  4. ETOPOSIDE [Suspect]
     Dosage: 60 MG/M2 FOR 5 CONSECUTIVE DAYS, IN COMBINATION WITH CISPLATIN
     Route: 065

REACTIONS (1)
  - MENINGIOMA [None]
